FAERS Safety Report 26106284 (Version 1)
Quarter: 2025Q4

REPORT INFORMATION
  Report Type: Spontaneous
  Country: EU (occurrence: EU)
  Receive Date: 20251201
  Receipt Date: 20251201
  Transmission Date: 20260119
  Serious: Yes (Death, Other)
  Sender: ALKEM
  Company Number: EU-ALKEM LABORATORIES LIMITED-DE-ALKEM-2025-12600

PATIENT
  Age: 59 Year
  Sex: Female

DRUGS (18)
  1. TACROLIMUS [Suspect]
     Active Substance: TACROLIMUS
     Indication: Follicular lymphoma stage III
     Dosage: 2 MILLIGRAM, BID (5 NG/ML) (D56)
     Route: 048
  2. TACROLIMUS [Suspect]
     Active Substance: TACROLIMUS
     Indication: Off label use
     Dosage: 2 MILLIGRAM, QD (EVERY 1 DAY) (D61)
     Route: 048
  3. TACROLIMUS [Suspect]
     Active Substance: TACROLIMUS
     Dosage: 1 MILLIGRAM, QD (EVERY 1 DAY) (5 NG/ML) (D76)
     Route: 048
  4. ATEZOLIZUMAB [Suspect]
     Active Substance: ATEZOLIZUMAB
     Indication: Follicular lymphoma stage III
     Dosage: 1200 MILLIGRAM (D1 OF C2-6)
     Route: 065
  5. BUDESONIDE [Suspect]
     Active Substance: BUDESONIDE
     Indication: Follicular lymphoma stage III
     Dosage: 1 MILLILITER, QD (250 MG/ML) (D48) (D71)
  6. BUDESONIDE [Suspect]
     Active Substance: BUDESONIDE
     Dosage: 1 MILLILITER, BID (250 MG/ML) (D61) (D86)
  7. OBINUTUZUMAB [Suspect]
     Active Substance: OBINUTUZUMAB
     Indication: Follicular lymphoma stage III
     Dosage: UNK
     Route: 065
     Dates: start: 2017
  8. OBINUTUZUMAB [Suspect]
     Active Substance: OBINUTUZUMAB
     Dosage: 1000 MILLIGRAM (D1, D8, D15 OF C1; D1 OF C2-6)
     Route: 065
  9. POLATUZUMAB VEDOTIN [Suspect]
     Active Substance: POLATUZUMAB VEDOTIN
     Indication: Follicular lymphoma stage III
     Dosage: 1.8 MILLIGRAM/KILOGRAM (D1 OF C1-6)
     Route: 065
  10. PREDNISOLONE [Suspect]
     Active Substance: PREDNISOLONE
     Indication: Follicular lymphoma stage III
     Dosage: 500 MG/DAY (D41) (D50) (D85)
     Route: 042
  11. PREDNISOLONE [Suspect]
     Active Substance: PREDNISOLONE
     Dosage: 500 MILLIGRAM, BID (D42-46)
     Route: 042
  12. PREDNISOLONE [Suspect]
     Active Substance: PREDNISOLONE
     Dosage: 20 MG/DAY (D47-48)
     Route: 048
  13. PREDNISOLONE [Suspect]
     Active Substance: PREDNISOLONE
     Dosage: 80 MG/DAY (D51-58)
     Route: 042
  14. PREDNISOLONE [Suspect]
     Active Substance: PREDNISOLONE
     Dosage: 60 MG/DAY (D76)
     Route: 042
  15. PREDNISOLONE [Suspect]
     Active Substance: PREDNISOLONE
     Dosage: 100 MG/DAY (D82)
     Route: 042
  16. PREDNISOLONE [Suspect]
     Active Substance: PREDNISOLONE
     Dosage: 200 MG/DAY (D90-93)
     Route: 042
  17. TOCILIZUMAB [Suspect]
     Active Substance: TOCILIZUMAB
     Indication: Follicular lymphoma stage III
     Dosage: 3000 MILLIGRAM (D44)
     Route: 042
  18. TOCILIZUMAB [Suspect]
     Active Substance: TOCILIZUMAB
     Dosage: 300 MILLIGRAM (D85)
     Route: 042

REACTIONS (6)
  - Pulmonary embolism [Unknown]
  - Bronchopulmonary aspergillosis [Fatal]
  - Opportunistic infection [Unknown]
  - Hypertransaminasaemia [Unknown]
  - Cytomegalovirus infection [Unknown]
  - Off label use [Unknown]
